FAERS Safety Report 6143504-6 (Version None)
Quarter: 2009Q2

REPORT INFORMATION
  Report Type: 
  Country: None (occurrence: None)
  Receive Date: 20090401
  Receipt Date: 20090319
  Transmission Date: 20091009
  Serious: Yes (Death)
  Sender: FDA-Public Use
  Company Number: MPS1-1000195

PATIENT
  Age: 8 Year
  Sex: Female
  Weight: 20 kg

DRUGS (1)
  1. ALDURAZYME [Suspect]
     Indication: MUCOPOLYSACCHARIDOSIS I
     Dosage: 11.6 MG,
     Dates: start: 20031023

REACTIONS (1)
  - RESPIRATORY DISORDER [None]
